FAERS Safety Report 20247403 (Version 6)
Quarter: 2023Q2

REPORT INFORMATION
  Report Type: Report from Study
  Country: AT (occurrence: AT)
  Receive Date: 20211229
  Receipt Date: 20230525
  Transmission Date: 20230722
  Serious: Yes (Other)
  Sender: FDA-Public Use
  Company Number: AT-ROCHE-2926540

PATIENT
  Age: 82 Year
  Sex: Female
  Weight: 77 kg

DRUGS (27)
  1. TRASTUZUMAB [Suspect]
     Active Substance: TRASTUZUMAB
     Indication: HER2 positive breast cancer
     Dosage: 462 MILLIGRAM, Q3W, MOST RECENT DOSE 28-NOV-2017
     Route: 042
     Dates: start: 20170822, end: 20171024
  2. PACLITAXEL [Suspect]
     Active Substance: PACLITAXEL
     Indication: HER2 positive breast cancer
     Dosage: 107.73 MILLIGRAM, QW
     Route: 042
     Dates: start: 20170822, end: 20171107
  3. ADO-TRASTUZUMAB EMTANSINE [Suspect]
     Active Substance: ADO-TRASTUZUMAB EMTANSINE
     Indication: HER2 positive breast cancer
     Dosage: 266.14 MICROGRAM, Q3W
     Route: 042
     Dates: start: 20210111
  4. HYALURONIDASE (HUMAN RECOMBINANT)\TRASTUZUMAB [Suspect]
     Active Substance: HYALURONIDASE (HUMAN RECOMBINANT)\TRASTUZUMAB
     Indication: HER2 positive breast cancer
     Dosage: 600 MILLIGRAM, Q3W
     Route: 058
     Dates: start: 20171128, end: 20201214
  5. LASIX [Concomitant]
     Active Substance: FUROSEMIDE
     Dosage: UNK (ONGOING = CHECKED)
     Route: 065
  6. LASIX [Concomitant]
     Active Substance: FUROSEMIDE
     Dosage: 40 MILLIGRAM, QD (ONGOING = CHECKED)
     Route: 065
  7. CRESTOR [Concomitant]
     Active Substance: ROSUVASTATIN CALCIUM
     Dosage: UNK (ONGOING = CHECKED)
     Route: 065
  8. CRESTOR [Concomitant]
     Active Substance: ROSUVASTATIN CALCIUM
     Dosage: 40 MILLIGRAM, QD (ONGOING = CHECKED)
     Route: 065
  9. EXFORGE HCT [Concomitant]
     Active Substance: AMLODIPINE BESYLATE\HYDROCHLOROTHIAZIDE\VALSARTAN
     Dosage: UNK (ONGOING = CHECKED)
     Route: 065
  10. EXFORGE HCT [Concomitant]
     Active Substance: AMLODIPINE BESYLATE\HYDROCHLOROTHIAZIDE\VALSARTAN
     Dosage: 5 MILLIGRAM, QD(ONGOING = CHECKED)
     Route: 065
  11. MAGNESIUM ASPARTATE\POTASSIUM ASPARTATE [Concomitant]
     Active Substance: MAGNESIUM ASPARTATE\POTASSIUM ASPARTATE
     Dosage: UNK (ONGOING = CHECKED)
     Route: 065
  12. MAGNESIUM ASPARTATE\POTASSIUM ASPARTATE [Concomitant]
     Active Substance: MAGNESIUM ASPARTATE\POTASSIUM ASPARTATE
     Dosage: 1 DOSAGE FORM, BID (ONGOING = CHECKED)
     Route: 065
  13. METOPROLOL [Concomitant]
     Active Substance: METOPROLOL
     Dosage: UNK (ONGOING = CHECKED)
     Route: 065
  14. METOPROLOL [Concomitant]
     Active Substance: METOPROLOL
     Dosage: 47.5 MILLIGRAM, BID (ONGOING = CHECKED)
     Route: 065
  15. DIGITOXIN [Concomitant]
     Active Substance: DIGITOXIN
     Indication: Atrial fibrillation
     Dosage: 0.07 MILLIGRAM, QD (ONGOING = CHECKED)
     Route: 065
     Dates: start: 20191111
  16. VALSARTAN [Concomitant]
     Active Substance: VALSARTAN
     Dosage: UNK (ONGOING = CHECKED)
     Route: 065
  17. VALSARTAN [Concomitant]
     Active Substance: VALSARTAN
     Dosage: 80 MILLIGRAM, QD (ONGOING = CHECKED)
     Route: 065
  18. METFORMIN [Concomitant]
     Active Substance: METFORMIN HYDROCHLORIDE
     Dosage: UNK (ONGOING = CHECKED)
     Route: 065
  19. METFORMIN [Concomitant]
     Active Substance: METFORMIN HYDROCHLORIDE
     Dosage: 500 MILLIGRAM, BID (ONGOING = CHECKED)
     Route: 065
  20. LOVENOX [Concomitant]
     Active Substance: ENOXAPARIN SODIUM
     Dosage: 40 MILLIGRAM, QD (ONGOING = CHECKED)
     Route: 065
     Dates: start: 20170729
  21. FUROSEMIDE [Concomitant]
     Active Substance: FUROSEMIDE
     Indication: Atrial fibrillation
     Dosage: 40 MILLIGRAM, BID (ONGOING = CHECKED)
     Route: 065
     Dates: start: 20200113
  22. Novalgin [Concomitant]
     Dosage: UNK (ONGOING = CHECKED)
     Route: 065
  23. Novalgin [Concomitant]
     Dosage: 500 MILLIGRAM (ONGOING = CHECKED)
     Route: 065
  24. ACTIMARIS [Concomitant]
     Dosage: UNK, QD (FREQUENCY-ONCE)
     Route: 065
     Dates: start: 20200404, end: 20200404
  25. TETANUS TOXOID ADSORBED (VACCINE) [Concomitant]
     Active Substance: CLOSTRIDIUM TETANI TOXOID ANTIGEN (FORMALDEHYDE INACTIVATED)
     Dosage: UNK, QD (FREQUENCY: ONCE)
     Route: 065
     Dates: start: 20200404, end: 20200404
  26. ACETAMINOPHEN [Concomitant]
     Active Substance: ACETAMINOPHEN
     Dosage: 500 MILLIGRAM
     Route: 065
     Dates: start: 20200404, end: 202004
  27. GRASSOLIND [Concomitant]
     Dosage: UNK, QD (ONCE)
     Route: 065
     Dates: start: 20201123, end: 20201123

REACTIONS (2)
  - Hypokalaemia [Not Recovered/Not Resolved]
  - Thrombocytopenia [Recovered/Resolved]

NARRATIVE: CASE EVENT DATE: 20210517
